FAERS Safety Report 6199064-7 (Version None)
Quarter: 2009Q2

REPORT INFORMATION
  Report Type: 
  Country: None (occurrence: None)
  Receive Date: 20090522
  Receipt Date: 20090519
  Transmission Date: 20091009
  Serious: Yes (Death)
  Sender: FDA-Public Use
  Company Number: IL-BAYER-200921376GPV

PATIENT
  Age: 72 Year

DRUGS (1)
  1. MABCAMPATH [Suspect]
     Indication: CHRONIC LYMPHOCYTIC LEUKAEMIA

REACTIONS (3)
  - MYELODYSPLASTIC SYNDROME [None]
  - PANCYTOPENIA [None]
  - SEPSIS [None]
